FAERS Safety Report 8398265-7 (Version None)
Quarter: 2012Q2

REPORT INFORMATION
  Report Type: 
  Country: None (occurrence: None)
  Receive Date: 20120531
  Receipt Date: 20120525
  Transmission Date: 20120825
  Serious: Yes (Hospitalization, Congenital Anomaly, Other)
  Sender: FDA-Public Use
  Company Number: US-PFIZER INC-2012128740

PATIENT
  Sex: Male

DRUGS (3)
  1. ZOLOFT [Suspect]
     Dosage: UNK
     Route: 064
     Dates: start: 20020606
  2. ZOLOFT [Suspect]
     Indication: DEPRESSION
     Dosage: 50 MG, 1X/DAY
     Route: 064
     Dates: start: 20020425
  3. SUDAFED 12 HOUR [Concomitant]
     Dosage: UNK
     Route: 064
     Dates: start: 20020606

REACTIONS (6)
  - ATRIAL SEPTAL DEFECT [None]
  - DILATATION ATRIAL [None]
  - MATERNAL EXPOSURE TIMING UNSPECIFIED [None]
  - CONGENITAL AORTIC ANOMALY [None]
  - URETHRAL MEATUS STENOSIS [None]
  - OESOPHAGEAL STENOSIS [None]
